FAERS Safety Report 7127667-1 (Version None)
Quarter: 2010Q4

REPORT INFORMATION
  Report Type: 
  Country: None (occurrence: None)
  Receive Date: 20101130
  Receipt Date: 20101119
  Transmission Date: 20110411
  Serious: No
  Sender: FDA-Public Use
  Company Number: US-BIOGENIDEC-2009BI026852

PATIENT
  Sex: Female

DRUGS (1)
  1. TYSABRI [Suspect]
     Indication: MULTIPLE SCLEROSIS
     Route: 042
     Dates: start: 20090624

REACTIONS (11)
  - ANXIETY [None]
  - CHEST DISCOMFORT [None]
  - CRYING [None]
  - EMOTIONAL DISORDER [None]
  - FATIGUE [None]
  - GENERAL SYMPTOM [None]
  - HEADACHE [None]
  - HOT FLUSH [None]
  - PRURITUS [None]
  - RASH PAPULAR [None]
  - SINUSITIS [None]
